FAERS Safety Report 8476072-4 (Version None)
Quarter: 2012Q2

REPORT INFORMATION
  Report Type: 
  Country: None (occurrence: None)
  Receive Date: 20120628
  Receipt Date: 20120615
  Transmission Date: 20120825
  Serious: Yes (Hospitalization)
  Sender: FDA-Public Use
  Company Number: IT-ELI_LILLY_AND_COMPANY-IT201206005482

PATIENT
  Sex: Female

DRUGS (3)
  1. DIAZEPAM [Concomitant]
     Indication: BIPOLAR DISORDER
     Dosage: 45 ML, SINGLE
     Route: 048
  2. ZYPREXA [Suspect]
     Dosage: 2.5 MG, UNK
     Route: 048
  3. ZYPREXA [Suspect]
     Indication: BIPOLAR DISORDER
     Dosage: 45 MG, SINGLE
     Route: 048
     Dates: start: 20120429, end: 20120429

REACTIONS (3)
  - INTENTIONAL OVERDOSE [None]
  - SOPOR [None]
  - SUICIDE ATTEMPT [None]
